FAERS Safety Report 8779968 (Version 1)
Quarter: 2012Q4

REPORT INFORMATION
  Report Type: 
  Country: US (occurrence: US)
  Receive Date: 20120912
  Receipt Date: 20120912
  Transmission Date: 20130627
  Serious: Yes (Other)
  Sender: FDA-Public Use
  Company Number: US-VERTEX PHARMACEUTICAL INC.-AE-2012-005251

PATIENT
  Age: 59 Year
  Sex: Male
  Weight: 79.55 kg

DRUGS (7)
  1. INCIVEK [Suspect]
     Indication: HEPATITIS C
     Route: 048
     Dates: start: 20120327
  2. PEGASYS [Concomitant]
     Indication: HEPATITIS C
     Route: 058
     Dates: start: 20120327, end: 201205
  3. PEGASYS [Concomitant]
     Dates: start: 201205
  4. RIBAVIRIN [Concomitant]
     Indication: HEPATITIS C
     Route: 048
     Dates: start: 20120327, end: 201205
  5. RIBAVIRIN [Concomitant]
     Route: 048
     Dates: start: 201205
  6. PAXIL [Concomitant]
     Indication: DEPRESSION
     Route: 048
  7. LISINOPRIL [Concomitant]
     Dates: end: 20120508

REACTIONS (6)
  - Haemoglobin decreased [Unknown]
  - Dyspnoea [Not Recovered/Not Resolved]
  - Dizziness [Not Recovered/Not Resolved]
  - Chills [Not Recovered/Not Resolved]
  - Fatigue [Not Recovered/Not Resolved]
  - Asthenia [Not Recovered/Not Resolved]
